FAERS Safety Report 6417406-1 (Version None)
Quarter: 2009Q4

REPORT INFORMATION
  Report Type: 
  Country: None (occurrence: None)
  Receive Date: 20091027
  Receipt Date: 20091027
  Transmission Date: 20100525
  Serious: Yes (Other)
  Sender: FDA-Public Use
  Company Number: None

PATIENT
  Sex: Male
  Weight: 3.38 kg

DRUGS (3)
  1. ZIDOVUDINE [Suspect]
     Indication: HIV INFECTION
     Dosage: 7.3 MG Q6H PO
     Route: 048
  2. ZIDOVUDINE [Suspect]
     Indication: PROPHYLAXIS
     Dosage: 7.3 MG Q6H PO
     Route: 048
  3. FERROUS SULFATE DROPS [Concomitant]

REACTIONS (2)
  - ANAEMIA [None]
  - HAEMATOTOXICITY [None]
